FAERS Safety Report 16312499 (Version 1)
Quarter: 2019Q2

REPORT INFORMATION
  Report Type: Spontaneous
  Country: CH (occurrence: CH)
  Receive Date: 20190515
  Receipt Date: 20190515
  Transmission Date: 20190711
  Serious: Yes (Hospitalization)
  Sender: FDA-Public Use
  Company Number: CH-TEVA-2019-CH-1049691

PATIENT
  Age: 78 Year
  Sex: Male
  Weight: 71.5 kg

DRUGS (8)
  1. VALTREX [Concomitant]
     Active Substance: VALACYCLOVIR HYDROCHLORIDE
     Dosage: 1000 MILLIGRAM DAILY; 2 DOSAGE FORMS PER DAY
     Route: 065
  2. CRESTOR [Suspect]
     Active Substance: ROSUVASTATIN CALCIUM
     Dosage: 10 MILLIGRAM DAILY; IN THE EVENING
     Route: 065
     Dates: end: 20190415
  3. TRIATEC [Concomitant]
     Dosage: 2.5 MILLIGRAM DAILY; IN THE MORNING
     Route: 065
  4. DIFLUCAN [Concomitant]
     Active Substance: FLUCONAZOLE
     Dosage: 450 MILLIGRAM DAILY;  2 DOSAGE FORMS IN THE MORNING AND 1 DOSAGE FORM IN THE EVENING, WEEKLY
     Route: 065
  5. NOPIL FORTE 800/160 [Concomitant]
     Dosage: MONDAY / WEDNESDAY / FRIDAY
     Route: 065
  6. CORDARONE [Concomitant]
     Active Substance: AMIODARONE HYDROCHLORIDE
     Dosage: 200 MILLIGRAM DAILY; IN THE MORNING
     Route: 065
  7. XARELTO [Concomitant]
     Active Substance: RIVAROXABAN
     Dosage: 15 MILLIGRAM DAILY; IN THE EVENING
     Route: 065
  8. IMATINIB TEVA [Suspect]
     Active Substance: IMATINIB
     Dosage: 800 MILLIGRAM DAILY; 2 DOSAGE FORMS PER DAY
     Route: 048
     Dates: start: 20190222, end: 20190419

REACTIONS (2)
  - Periorbital oedema [Recovered/Resolved]
  - Myositis [Recovered/Resolved]

NARRATIVE: CASE EVENT DATE: 20190415
